FAERS Safety Report 8915163 (Version 1)
Quarter: 2012Q4

REPORT INFORMATION
  Report Type: 
  Country: JP (occurrence: JP)
  Receive Date: 20121119
  Receipt Date: 20121119
  Transmission Date: 20130627
  Serious: Yes (Hospitalization)
  Sender: FDA-Public Use
  Company Number: JP-NOVOPROD-364118

PATIENT
  Age: 72 Year
  Sex: Female
  Weight: 66 kg

DRUGS (14)
  1. VICTOZA HIKACHU INJECTION [Suspect]
     Indication: TYPE 2 DIABETES MELLITUS
     Dosage: 0.3 mg, qd
     Route: 058
     Dates: start: 20111008
  2. VICTOZA HIKACHU INJECTION [Suspect]
     Dosage: 0.6 mg, qd
     Route: 058
     Dates: start: 20111014
  3. VICTOZA HIKACHU INJECTION [Suspect]
     Dosage: 0.9 mg, qd
     Route: 058
     Dates: start: 20111018, end: 20111115
  4. CRESTOR [Concomitant]
     Route: 048
  5. KINEDAK [Concomitant]
     Route: 048
  6. PURSENNID /00142207/ [Concomitant]
     Route: 048
  7. MAGMITT [Concomitant]
     Route: 048
  8. BAYASPIRIN [Concomitant]
     Route: 048
  9. REZALTAS [Concomitant]
     Route: 048
  10. GLOW-ITOROL(ISOSORBIDE MONONITRATE) [Concomitant]
     Route: 048
  11. GLOW-ARTIST(CARVEDILOL) [Concomitant]
     Route: 048
  12. GLOW-PLETAAL(CILOSTAZOL) [Concomitant]
  13. GLOW-FRANDOL S(ISOSORBIDE DINITRATE) [Concomitant]
     Dosage: 1sheet/day
     Route: 062
  14. GLOW-PROTECADIN(LAFUTIDINE) [Concomitant]
     Route: 048

REACTIONS (3)
  - Loss of consciousness [Recovered/Resolved]
  - Dehydration [Recovered/Resolved]
  - Diarrhoea [Recovered/Resolved]
